FAERS Safety Report 6331535-2 (Version None)
Quarter: 2009Q3

REPORT INFORMATION
  Report Type: 
  Country: None (occurrence: None)
  Receive Date: 20090827
  Receipt Date: 20090819
  Transmission Date: 20100115
  Serious: Yes (Hospitalization)
  Sender: FDA-Public Use
  Company Number: US-WYE-H10655409

PATIENT
  Sex: Male
  Weight: 91.3 kg

DRUGS (3)
  1. TORISEL [Suspect]
     Indication: RENAL CELL CARCINOMA
     Route: 042
     Dates: start: 20090218, end: 20090808
  2. METOPROLOL [Concomitant]
     Route: 048
     Dates: start: 20090101
  3. VALSARTAN [Concomitant]
     Indication: HYPERTENSION
     Route: 048
     Dates: start: 20090101

REACTIONS (5)
  - CHRONIC SINUSITIS [None]
  - HYPERSENSITIVITY [None]
  - HYPOXIA [None]
  - LUNG INFILTRATION [None]
  - WHEEZING [None]
